FAERS Safety Report 21330317 (Version 1)
Quarter: 2022Q3

REPORT INFORMATION
  Report Type: Report from Study
  Country: CA (occurrence: CA)
  Receive Date: 20220913
  Receipt Date: 20220913
  Transmission Date: 20221027
  Serious: Yes (Other)
  Sender: FDA-Public Use
  Company Number: CA-JNJFOC-20220919347

PATIENT
  Age: 21 Year
  Sex: Female

DRUGS (2)
  1. STELARA [Suspect]
     Active Substance: USTEKINUMAB
     Indication: Crohn^s disease
     Route: 058
     Dates: start: 20190728
  2. STELARA [Suspect]
     Active Substance: USTEKINUMAB
     Indication: Epilepsy

REACTIONS (5)
  - Eye infection [Recovering/Resolving]
  - Weight decreased [Unknown]
  - Alopecia [Unknown]
  - Mouth ulceration [Unknown]
  - Off label use [Unknown]

NARRATIVE: CASE EVENT DATE: 20190728
